FAERS Safety Report 4895984-1 (Version None)
Quarter: 2005Q4

REPORT INFORMATION
  Report Type: 
  Country: None (occurrence: None)
  Receive Date: 20051220
  Receipt Date: 20050627
  Transmission Date: 20060501
  Serious: Yes (Other)
  Sender: FDA-Public Use
  Company Number: US060646

PATIENT
  Age: 62 Year
  Sex: Female
  Weight: 68.1 kg

DRUGS (2)
  1. ENBREL [Suspect]
     Indication: RHEUMATOID ARTHRITIS
     Dosage: 25 MG, TWICE WEEKLY, SC
     Route: 058
     Dates: start: 19990101, end: 20050401
  2. METHOTREXATE [Concomitant]

REACTIONS (4)
  - CONDITION AGGRAVATED [None]
  - INTRAOCULAR MELANOMA [None]
  - METASTASES TO LIVER [None]
  - RHEUMATOID ARTHRITIS [None]
